FAERS Safety Report 23021772 (Version 1)
Quarter: 2023Q4

REPORT INFORMATION
  Report Type: Spontaneous
  Country: CN (occurrence: CN)
  Receive Date: 20231003
  Receipt Date: 20231003
  Transmission Date: 20240110
  Serious: Yes (Other)
  Sender: FDA-Public Use
  Company Number: CN-BAYER-2023A137256

PATIENT
  Age: 59 Year
  Sex: Male
  Weight: 63 kg

DRUGS (7)
  1. STIVARGA [Suspect]
     Active Substance: REGORAFENIB
     Indication: Metastases to liver
     Dosage: 120 MG, QD
     Route: 048
     Dates: start: 20230830
  2. STIVARGA [Suspect]
     Active Substance: REGORAFENIB
     Indication: Colon cancer
  3. CAPECITABINE [Suspect]
     Active Substance: CAPECITABINE
     Indication: Metastases to liver
     Dosage: 1 G, BID
     Route: 048
     Dates: start: 20230830
  4. CAPECITABINE [Suspect]
     Active Substance: CAPECITABINE
     Indication: Colon cancer
  5. CAMRELIZUMAB [Suspect]
     Active Substance: CAMRELIZUMAB
     Indication: Metastases to liver
     Dosage: 200 MG, Q3WK
     Route: 041
     Dates: start: 20230829, end: 20230919
  6. CAMRELIZUMAB [Suspect]
     Active Substance: CAMRELIZUMAB
     Indication: Colon cancer
  7. SODIUM CHLORIDE [Concomitant]
     Active Substance: SODIUM CHLORIDE
     Indication: Vehicle solution use
     Dosage: 100 ML, Q3WK
     Route: 041
     Dates: start: 20230829, end: 20230919

REACTIONS (2)
  - Telangiectasia [Unknown]
  - Off label use [None]

NARRATIVE: CASE EVENT DATE: 20230830
